FAERS Safety Report 5160455-4 (Version None)
Quarter: 2006Q4

REPORT INFORMATION
  Report Type: 
  Country: None (occurrence: None)
  Receive Date: 20061121
  Receipt Date: 20061110
  Transmission Date: 20070319
  Serious: Yes (Death)
  Sender: FDA-Public Use
  Company Number: SPV1-2006-01663

PATIENT
  Age: 30 Year
  Sex: 0

DRUGS (2)
  1. ADDERALL 10 [Suspect]
  2. COCAINE (COCAINE) [Suspect]

REACTIONS (1)
  - DRUG ABUSER [None]
